FAERS Safety Report 25155639 (Version 2)
Quarter: 2025Q2

REPORT INFORMATION
  Report Type: Spontaneous
  Country: DE (occurrence: DE)
  Receive Date: 20250403
  Receipt Date: 20250502
  Transmission Date: 20250716
  Serious: Yes (Life-Threatening, Hospitalization, Other)
  Sender: DR REDDYS
  Company Number: None

PATIENT
  Age: 70 Year
  Sex: Male

DRUGS (16)
  1. OLANZAPINE [Suspect]
     Active Substance: OLANZAPINE
     Indication: Schizophrenia
     Dosage: 2.5MG DAILY
  2. OLANZAPINE [Suspect]
     Active Substance: OLANZAPINE
  3. OLANZAPINE [Suspect]
     Active Substance: OLANZAPINE
  4. OLANZAPINE [Suspect]
     Active Substance: OLANZAPINE
  5. OLANZAPINE [Suspect]
     Active Substance: OLANZAPINE
  6. CLOZAPINE [Suspect]
     Active Substance: CLOZAPINE
     Indication: Schizophrenia
     Dosage: FROM DAY 49
  7. CLOZAPINE [Suspect]
     Active Substance: CLOZAPINE
     Dosage: INCREASED TO 2 X 12.5MG AFTER 5?DAYS
  8. CLOZAPINE [Suspect]
     Active Substance: CLOZAPINE
     Dosage: 2 X 25 MG PER DAY AFTER ANOTHER 9 DAYS
  9. CLOZAPINE [Suspect]
     Active Substance: CLOZAPINE
     Dosage: FROM DAY 55
  10. FOLIC ACID [Concomitant]
     Active Substance: FOLIC ACID
     Indication: Product used for unknown indication
  11. VITAMIN B12 [Concomitant]
     Active Substance: CYANOCOBALAMIN
     Indication: Product used for unknown indication
  12. CHOLECALCIFEROL [Concomitant]
     Active Substance: CHOLECALCIFEROL
     Indication: Product used for unknown indication
  13. MELPERONE [Concomitant]
     Active Substance: MELPERONE
     Indication: Product used for unknown indication
  14. RAMIPRIL [Concomitant]
     Active Substance: RAMIPRIL
     Indication: Hypertension
  15. SPIRONOLACTONE [Concomitant]
     Active Substance: SPIRONOLACTONE
     Indication: Hypertension
  16. TORSEMIDE [Concomitant]
     Active Substance: TORSEMIDE
     Indication: Hypertension

REACTIONS (2)
  - Acute kidney injury [Recovered/Resolved]
  - Drug ineffective [Unknown]
